FAERS Safety Report 4723824-X (Version None)
Quarter: 2005Q3

REPORT INFORMATION
  Report Type: 
  Country: None (occurrence: None)
  Receive Date: 20050721
  Receipt Date: 20050713
  Transmission Date: 20060218
  Serious: Yes (Other)
  Sender: FDA-Public Use
  Company Number: 2005100979

PATIENT
  Sex: Female

DRUGS (1)
  1. CYTOTEC [Suspect]
     Indication: ABORTION SPONTANEOUS
     Dosage: VAGINAL
     Route: 067
     Dates: start: 20011201

REACTIONS (2)
  - HAEMORRHAGE [None]
  - PAIN [None]
